FAERS Safety Report 9493183 (Version 5)
Quarter: 2014Q2

REPORT INFORMATION
  Report Type: Spontaneous
  Country: IE (occurrence: IE)
  Receive Date: 20130902
  Receipt Date: 20140613
  Transmission Date: 20141212
  Serious: Yes (Death, Hospitalization, Other)
  Sender: FDA-Public Use
  Company Number: GB-BRISTOL-MYERS SQUIBB COMPANY-19236868

PATIENT
  Age: 66 Year
  Sex: Female

DRUGS (8)
  1. YERVOY [Suspect]
     Indication: MALIGNANT MELANOMA
     Dosage: CYCLES-1:SEP11-NOV11,2:UNK-MAY12,3:01JUL13-12AUG13-3A79197?22JUL-200MGVIAL-2M5164
     Route: 042
     Dates: start: 201109
  2. PREDNISOLONE [Suspect]
     Route: 042
  3. HALOPERIDOL LACTATE [Concomitant]
     Indication: SCHIZOPHRENIA
  4. LANSOPRAZOLE [Concomitant]
  5. SEPTRIN [Concomitant]
     Dosage: MON/WED/FRIDAY
     Dates: start: 20130820
  6. CALCICHEW D3 [Concomitant]
     Dosage: DOSAGE FORM = 1 TABLET
     Dates: start: 20130820
  7. FOSAMAX [Concomitant]
     Dates: start: 20130820
  8. NOVORAPID [Concomitant]
     Indication: HYPERGLYCAEMIA
     Dates: start: 20130828

REACTIONS (6)
  - Malignant neoplasm progression [Fatal]
  - Ophthalmoplegia [Recovered/Resolved]
  - Conjunctivitis [Recovering/Resolving]
  - Adrenal insufficiency [Unknown]
  - Hyperglycaemia [Unknown]
  - Extraocular muscle disorder [Unknown]
